FAERS Safety Report 6851360-3 (Version None)
Quarter: 2010Q3

REPORT INFORMATION
  Report Type: 
  Country: None (occurrence: None)
  Receive Date: 20100717
  Receipt Date: 20080215
  Transmission Date: 20110219
  Serious: No
  Sender: FDA-Public Use
  Company Number: US-PFIZER INC-2008005962

PATIENT
  Sex: Female
  Weight: 68 kg

DRUGS (8)
  1. CHANTIX [Suspect]
     Indication: SMOKING CESSATION THERAPY
     Dates: start: 20070101
  2. EFFEXOR [Suspect]
     Indication: DEPRESSION
     Dates: start: 20070101
  3. AMBIEN [Concomitant]
  4. ATENOLOL [Concomitant]
  5. LISINOPRIL [Concomitant]
  6. FLUTICASONE [Concomitant]
     Route: 045
  7. QUININE [Concomitant]
  8. FENTANYL [Concomitant]

REACTIONS (2)
  - MIGRAINE [None]
  - NAUSEA [None]
